FAERS Safety Report 8876250 (Version 1)
Quarter: 2012Q4

REPORT INFORMATION
  Report Type: 
  Country: US (occurrence: US)
  Receive Date: 20121031
  Receipt Date: 20121031
  Transmission Date: 20130627
  Serious: Yes (Other)
  Sender: FDA-Public Use
  Company Number: US-AMGEN-USASP2012068267

PATIENT
  Age: 2 Month
  Sex: Male

DRUGS (1)
  1. EPOETIN ALFA [Suspect]
     Indication: ANAEMIA NEONATAL
     Dosage: 400 IU/kg, 3 times/wk, total of nine doses
     Route: 058

REACTIONS (2)
  - Extramedullary haemopoiesis [Recovered/Resolved]
  - Purpura neonatal [Recovered/Resolved]
